FAERS Safety Report 9284278 (Version 1)
Quarter: 2013Q2

REPORT INFORMATION
  Report Type: Spontaneous
  Country: US (occurrence: US)
  Receive Date: 20130510
  Receipt Date: 20130510
  Transmission Date: 20140414
  Serious: No
  Sender: FDA-Public Use
  Company Number: US-COVIDIEN/TYCO HEALTHCARE/MALLINCKRODT-T201301724

PATIENT
  Age: 79 Year
  Sex: Male
  Weight: 74.83 kg

DRUGS (9)
  1. FENTANYL TRANSDERMAL SYSTEM [Suspect]
     Indication: PAIN
     Dosage: 25 UG/HR, Q 72 HRS
     Route: 062
     Dates: start: 20130416, end: 20130418
  2. IBUPROFEN [Concomitant]
     Dosage: UNK
  3. OMEPRAZOLE [Concomitant]
     Dosage: UNK
  4. GABAPENTIN [Concomitant]
     Dosage: UNK
  5. AGGRENOX [Concomitant]
     Dosage: UNK
  6. LOVASTATIN [Concomitant]
     Dosage: UNK
  7. TRAZODONE [Concomitant]
     Dosage: UNK
  8. RAPAFLO [Concomitant]
     Dosage: UNK
  9. ZOLPIDEM [Concomitant]
     Dosage: UNK

REACTIONS (1)
  - Application site discolouration [Not Recovered/Not Resolved]
